FAERS Safety Report 4853655-1 (Version None)
Quarter: 2005Q4

REPORT INFORMATION
  Report Type: 
  Country: None (occurrence: None)
  Receive Date: 20051212
  Receipt Date: 20051116
  Transmission Date: 20060501
  Serious: Yes (Hospitalization)
  Sender: FDA-Public Use
  Company Number: 2004-00877

PATIENT
  Age: 78 Year
  Sex: Male

DRUGS (1)
  1. VELCADE [Suspect]
     Indication: MULTIPLE MYELOMA
     Dosage: 2.50 MG, INTRAVENOUS
     Route: 042
     Dates: start: 20040921, end: 20041112

REACTIONS (23)
  - ANTIBODY TEST POSITIVE [None]
  - ASTHENIA [None]
  - BLOOD IMMUNOGLOBULIN A INCREASED [None]
  - BLOOD IMMUNOGLOBULIN G DECREASED [None]
  - BLOOD IMMUNOGLOBULIN M DECREASED [None]
  - CENTRAL NERVOUS SYSTEM INFLAMMATION [None]
  - CEREBRAL ATROPHY [None]
  - CEREBRAL ISCHAEMIA [None]
  - CONFUSIONAL STATE [None]
  - ELECTROPHORESIS PROTEIN ABNORMAL [None]
  - HAEMANGIOMA OF LIVER [None]
  - HAEMOGLOBIN DECREASED [None]
  - HERPES ZOSTER [None]
  - HYPERPLASTIC CHOLECYSTOPATHY [None]
  - LYMPHOCYTE COUNT INCREASED [None]
  - MALIGNANT NEOPLASM PROGRESSION [None]
  - METASTASES TO SPINE [None]
  - MULTIPLE MYELOMA [None]
  - MYOPATHY [None]
  - MYOPATHY STEROID [None]
  - PAIN IN EXTREMITY [None]
  - PLEURAL CALCIFICATION [None]
  - POST HERPETIC NEURALGIA [None]
